FAERS Safety Report 9079200 (Version 1)
Quarter: 2013Q1

REPORT INFORMATION
  Report Type: Report from Study
  Country: US (occurrence: US)
  Receive Date: 20130130
  Receipt Date: 20130130
  Transmission Date: 20140127
  Serious: No
  Sender: FDA-Public Use
  Company Number: US-ABBOTT-12P-163-0958496-00

PATIENT
  Sex: Female
  Weight: 56.75 kg

DRUGS (7)
  1. HUMIRA 40 MG/0.8 ML PEN [Suspect]
     Indication: COLITIS ULCERATIVE
     Dates: start: 2011, end: 2011
  2. HUMIRA 40 MG/0.8 ML PEN [Suspect]
     Dates: start: 2011, end: 2011
  3. HUMIRA 40 MG/0.8 ML PEN [Suspect]
  4. HUMIRA 40 MG/0.8 ML PEN [Suspect]
     Dates: end: 201207
  5. PREDNISONE [Concomitant]
     Indication: COLITIS ULCERATIVE
     Dosage: WEANING
  6. APRISO [Concomitant]
     Indication: COLITIS ULCERATIVE
  7. AZATHIOPRINE [Concomitant]
     Indication: COLITIS ULCERATIVE

REACTIONS (9)
  - Malaise [Not Recovered/Not Resolved]
  - Appetite disorder [Not Recovered/Not Resolved]
  - Abdominal pain [Not Recovered/Not Resolved]
  - Diarrhoea [Not Recovered/Not Resolved]
  - Colitis [Not Recovered/Not Resolved]
  - Therapeutic response unexpected [Not Recovered/Not Resolved]
  - Arthralgia [Not Recovered/Not Resolved]
  - Off label use [Not Recovered/Not Resolved]
  - Drug ineffective [Unknown]
